FAERS Safety Report 9733364 (Version 3)
Quarter: 2014Q2

REPORT INFORMATION
  Report Type: Spontaneous
  Country: US (occurrence: US)
  Receive Date: 20131204
  Receipt Date: 20140414
  Transmission Date: 20141212
  Serious: Yes (Other)
  Sender: FDA-Public Use
  Company Number: US-ROCHE-1231823

PATIENT
  Age: 62 Year
  Sex: Female

DRUGS (7)
  1. XELODA [Suspect]
     Indication: BREAST CANCER
     Route: 048
     Dates: start: 20120615, end: 20130528
  2. XELODA [Suspect]
     Dosage: BID 7 DAYS ON AND 7 DAYS OFF
     Route: 048
     Dates: start: 20120619, end: 20130528
  3. XELODA [Suspect]
     Route: 048
     Dates: start: 20120619, end: 20140410
  4. SIMVASTATIN [Concomitant]
     Route: 065
  5. FLUOXETINE [Concomitant]
     Route: 065
  6. EC ASA [Concomitant]
  7. PRILOSEC [Concomitant]

REACTIONS (6)
  - Tumour marker increased [Unknown]
  - Palmar-plantar erythrodysaesthesia syndrome [Unknown]
  - Fatigue [Unknown]
  - Gastrostomy [Not Recovered/Not Resolved]
  - Disease progression [Unknown]
  - Drug ineffective [Unknown]
